FAERS Safety Report 25085981 (Version 1)
Quarter: 2025Q1

REPORT INFORMATION
  Report Type: Spontaneous
  Country: US (occurrence: US)
  Receive Date: 20250317
  Receipt Date: 20250317
  Transmission Date: 20250408
  Serious: No
  Sender: BAUSCH AND LOMB
  Company Number: US-BAUSCHBL-2025BNL004310

PATIENT
  Age: 93 Year
  Sex: Female
  Weight: 58.51 kg

DRUGS (4)
  1. POLYMYXIN B SULFATE AND TRIMETHOPRIM [Suspect]
     Active Substance: POLYMYXIN B SULFATE\TRIMETHOPRIM SULFATE
     Indication: Conjunctivitis
     Route: 047
  2. ASPIRIN [Concomitant]
     Active Substance: ASPIRIN
     Indication: Product used for unknown indication
  3. METOPROLOL [Concomitant]
     Active Substance: METOPROLOL
     Indication: Product used for unknown indication
  4. ROSUVASTATIN [Concomitant]
     Active Substance: ROSUVASTATIN
     Indication: Product used for unknown indication

REACTIONS (7)
  - Purulent discharge [Unknown]
  - Bloody discharge [Unknown]
  - Eye swelling [Not Recovered/Not Resolved]
  - Swelling face [Unknown]
  - Burning sensation [Unknown]
  - Pain [Unknown]
  - Treatment noncompliance [Unknown]
